FAERS Safety Report 18614821 (Version 1)
Quarter: 2020Q4

REPORT INFORMATION
  Report Type: Other
  Country: FR (occurrence: FR)
  Receive Date: 20201214
  Receipt Date: 20201214
  Transmission Date: 20210114
  Serious: Yes (Other)
  Sender: FDA-Public Use
  Company Number: FR-AYTU BIOSCIENCES, INC.-2020AYT000294

PATIENT

DRUGS (1)
  1. RABEPRAZOLE SODIUM UNKNOWN [Suspect]
     Active Substance: RABEPRAZOLE SODIUM
     Indication: GASTRIC ULCER
     Dosage: 20 MG, QD
     Route: 048
     Dates: start: 20110601, end: 20110615

REACTIONS (3)
  - Hepatocellular injury [Recovered/Resolved]
  - Bilirubin conjugated increased [Recovered/Resolved]
  - Jaundice [Recovered/Resolved]

NARRATIVE: CASE EVENT DATE: 20110615
